FAERS Safety Report 5297814-5 (Version None)
Quarter: 2007Q2

REPORT INFORMATION
  Report Type: 
  Country: None (occurrence: None)
  Receive Date: 20070413
  Receipt Date: 20070413
  Transmission Date: 20071010
  Serious: Yes (Hospitalization)
  Sender: FDA-Public Use
  Company Number: None

PATIENT
  Sex: Male
  Weight: 72.5755 kg

DRUGS (10)
  1. TAXOTERE [Suspect]
     Indication: LUNG NEOPLASM MALIGNANT
     Dosage: 57MG DAY 1, 8, 15 Q DAYS IV
     Route: 042
     Dates: start: 20070307, end: 20070322
  2. GLEEVEC [Suspect]
     Indication: LUNG NEOPLASM MALIGNANT
     Dosage: 600MG DAILY PO
     Route: 048
     Dates: start: 20070307, end: 20070330
  3. ALBUTEROL [Concomitant]
  4. VERAPAMIL [Concomitant]
  5. LISINOPRIL AND HYDROCHLOROTHIAZIDE [Concomitant]
  6. ALTROVENT [Concomitant]
  7. PROMETHAZINE/CODEINE [Concomitant]
  8. COMPAZINE [Concomitant]
  9. DECADRON [Concomitant]
  10. AUGMENTIN '125' [Concomitant]

REACTIONS (5)
  - DISEASE PROGRESSION [None]
  - HAEMOPTYSIS [None]
  - PNEUMONIA [None]
  - RESPIRATORY FAILURE [None]
  - TREMOR [None]
